FAERS Safety Report 8117112-1 (Version None)
Quarter: 2012Q1

REPORT INFORMATION
  Report Type: 
  Country: None (occurrence: None)
  Receive Date: 20120206
  Receipt Date: 20120120
  Transmission Date: 20120608
  Serious: Yes (Hospitalization)
  Sender: FDA-Public Use
  Company Number: US-BAYER-201038052NA

PATIENT
  Age: 50 Year
  Sex: Female
  Weight: 70.295 kg

DRUGS (15)
  1. ALBUTEROL [Concomitant]
  2. VALTREX [Concomitant]
     Dosage: 500 MG, UNK
     Route: 048
     Dates: start: 20070619
  3. CELEXA [Concomitant]
     Dosage: UNK UNK, QD
  4. IMITREX [Concomitant]
     Dosage: UNK
     Route: 058
     Dates: start: 20070531
  5. YAZ [Suspect]
     Indication: ACNE
     Dosage: UNK
     Dates: start: 20070501, end: 20070801
  6. ASTELIN [Concomitant]
     Dosage: 137 MG, UNK
     Route: 055
     Dates: start: 20070516, end: 20070709
  7. PLAVIX [Concomitant]
     Dosage: 75 MG, QD
  8. ALTACE [Concomitant]
     Dosage: 10 MG, QD
  9. CLARITIN [Concomitant]
     Dosage: 10 MG, QD
  10. CARVEDILOL [Concomitant]
     Dosage: 25 MG, BID
  11. IMITREX [Concomitant]
     Dosage: 100 MG, UNK
     Route: 048
     Dates: start: 20070502, end: 20070725
  12. YAZ [Suspect]
     Indication: VAGINAL HAEMORRHAGE
  13. ZYRTEC [Concomitant]
  14. ZOCOR [Concomitant]
     Dosage: 20 MG, QD
  15. AMLODIPINE [Concomitant]
     Dosage: 10 MG, QD

REACTIONS (7)
  - MYOCARDIAL INFARCTION [None]
  - HYPERTENSION [None]
  - PAIN IN EXTREMITY [None]
  - HYPERHIDROSIS [None]
  - INJURY [None]
  - CHEST PAIN [None]
  - DYSPNOEA [None]
